FAERS Safety Report 17820372 (Version 5)
Quarter: 2021Q3

REPORT INFORMATION
  Report Type: Report from Study
  Country: US (occurrence: US)
  Receive Date: 20200525
  Receipt Date: 20210924
  Transmission Date: 20211014
  Serious: Yes (Disabling, Other)
  Sender: FDA-Public Use
  Company Number: US-AMGEN-USASL2020075962

PATIENT
  Age: 71 Year
  Sex: Male

DRUGS (1)
  1. ENBREL [Suspect]
     Active Substance: ETANERCEPT
     Indication: RHEUMATOID ARTHRITIS
     Dosage: 50 MILLIGRAM, QWK
     Route: 065

REACTIONS (7)
  - Meningoencephalitis viral [Unknown]
  - Sciatica [Unknown]
  - Dysgraphia [Unknown]
  - Nervous system disorder [Unknown]
  - Cerebral haemorrhage [Unknown]
  - Weight decreased [Recovered/Resolved]
  - Gait disturbance [Unknown]
